FAERS Safety Report 7816474-X (Version None)
Quarter: 2011Q4

REPORT INFORMATION
  Report Type: 
  Country: None (occurrence: None)
  Receive Date: 20111017
  Receipt Date: 20111007
  Transmission Date: 20120403
  Serious: Yes (Other)
  Sender: FDA-Public Use
  Company Number: US-JNJFOC-20111003962

PATIENT
  Sex: Female
  Weight: 106.6 kg

DRUGS (14)
  1. OXCARBAZEPINE [Concomitant]
     Route: 065
  2. PAROXETINE HCL [Concomitant]
     Route: 065
  3. FENTANYL [Suspect]
     Route: 062
     Dates: start: 20110901, end: 20110913
  4. UNKNOWN MEDICATION [Suspect]
     Indication: CONFUSIONAL STATE
     Dates: start: 20110902, end: 20110901
  5. TRAMADOL HCL [Concomitant]
     Route: 065
  6. TYSABRI [Concomitant]
     Route: 065
  7. TRAZODONE HYDROCHLORIDE [Concomitant]
     Route: 065
  8. BACLOFEN [Concomitant]
     Route: 065
  9. BUPROPION HCL [Concomitant]
     Route: 065
  10. PROMETHAZINE [Concomitant]
     Route: 065
  11. UNKNOWN MEDICATION [Suspect]
     Dates: start: 20110901, end: 20110921
  12. HYDROCODONE BITARTRATE AND IBUPROFEN [Concomitant]
     Route: 065
  13. FENTANYL [Suspect]
     Indication: PAIN
     Route: 062
     Dates: start: 20110902, end: 20110901
  14. UNKNOWN MEDICATION [Suspect]
     Dates: start: 20110901, end: 20110913

REACTIONS (8)
  - MOOD ALTERED [None]
  - SWELLING FACE [None]
  - CONFUSIONAL STATE [None]
  - PAIN [None]
  - DYSURIA [None]
  - POLLAKIURIA [None]
  - OEDEMA PERIPHERAL [None]
  - DELIRIUM TREMENS [None]
